FAERS Safety Report 17910064 (Version 1)
Quarter: 2020Q2

REPORT INFORMATION
  Report Type: Spontaneous
  Country: US (occurrence: US)
  Receive Date: 20200617
  Receipt Date: 20200617
  Transmission Date: 20200714
  Serious: Yes (Hospitalization, Other)
  Sender: FDA-Public Use
  Company Number: US-GLAXOSMITHKLINE-US2020GSK097185

PATIENT
  Sex: Male

DRUGS (9)
  1. AZITHROMYCIN ANHYDROUS. [Suspect]
     Active Substance: AZITHROMYCIN ANHYDROUS
     Dosage: 5 MG/KG, QD
  2. CLINDAMYCIN. [Suspect]
     Active Substance: CLINDAMYCIN
     Indication: PARASITE BLOOD TEST POSITIVE
  3. ATOVAQUONE. [Suspect]
     Active Substance: ATOVAQUONE
     Indication: PARASITE BLOOD TEST POSITIVE
     Dosage: 40 MG/KG, BID (DIVIDED EVERY 12 H)
  4. AZITHROMYCIN ANHYDROUS. [Suspect]
     Active Substance: AZITHROMYCIN ANHYDROUS
     Indication: ELECTROCARDIOGRAM QT PROLONGED
     Dosage: UNK
     Route: 064
  5. ATOVAQUONE. [Suspect]
     Active Substance: ATOVAQUONE
     Indication: BABESIOSIS
     Dosage: UNK
     Route: 064
  6. QUININE SULFATE. [Suspect]
     Active Substance: QUININE SULFATE
     Indication: BABESIOSIS
     Dosage: UNK
     Route: 064
  7. CLINDAMYCIN. [Suspect]
     Active Substance: CLINDAMYCIN
     Indication: BABESIOSIS
     Dosage: UNK
     Route: 064
  8. QUININE SULFATE. [Suspect]
     Active Substance: QUININE SULFATE
     Indication: PARASITE BLOOD TEST POSITIVE
  9. AZITHROMYCIN ANHYDROUS. [Suspect]
     Active Substance: AZITHROMYCIN ANHYDROUS
     Indication: BABESIOSIS
     Dosage: 10 MG/KG, 1D

REACTIONS (16)
  - Cutaneous extramedullary haemopoiesis [Unknown]
  - Acute myeloid leukaemia [Unknown]
  - Decreased appetite [Unknown]
  - Irritability [Unknown]
  - Skin lesion [Unknown]
  - Bone marrow disorder [Unknown]
  - Skin mass [Unknown]
  - Thrombocytosis [Unknown]
  - Nodule [Unknown]
  - Pallor [Unknown]
  - Contusion [Unknown]
  - Platelet count decreased [Unknown]
  - Coombs test positive [Unknown]
  - Foetal exposure during pregnancy [Unknown]
  - Rash [Unknown]
  - Antineutrophil cytoplasmic antibody positive [Unknown]
